FAERS Safety Report 13232010 (Version 2)
Quarter: 2017Q1

REPORT INFORMATION
  Report Type: Spontaneous
  Country: JP (occurrence: JP)
  Receive Date: 20170214
  Receipt Date: 20170216
  Transmission Date: 20170428
  Serious: Yes (Hospitalization)
  Sender: FDA-Public Use
  Company Number: JP-JNJFOC-20170212591

PATIENT
  Age: 8 Decade
  Sex: Male

DRUGS (2)
  1. DUROTEP [Suspect]
     Active Substance: FENTANYL
     Indication: CANCER PAIN
     Route: 062
  2. FENTOS [Concomitant]
     Active Substance: FENTANYL
     Indication: CANCER PAIN
     Route: 062

REACTIONS (1)
  - Condition aggravated [Unknown]

NARRATIVE: CASE EVENT DATE: 20170207
